FAERS Safety Report 14701110 (Version 1)
Quarter: 2018Q1

REPORT INFORMATION
  Report Type: Spontaneous
  Country: US (occurrence: US)
  Receive Date: 20180328
  Receipt Date: 20180328
  Transmission Date: 20180509
  Serious: Yes (Hospitalization)
  Sender: FDA-Public Use
  Company Number: None

PATIENT
  Age: 87 Year
  Sex: Male

DRUGS (2)
  1. DOXYCYCLINE. [Suspect]
     Active Substance: DOXYCYCLINE
     Indication: ATRIAL FIBRILLATION
     Route: 048
     Dates: start: 20180308, end: 20180316
  2. WARFARIN [Suspect]
     Active Substance: WARFARIN
     Route: 048
     Dates: start: 20171120

REACTIONS (11)
  - Eczema impetiginous [None]
  - International normalised ratio increased [None]
  - Haemorrhagic diathesis [None]
  - Scratch [None]
  - Skin lesion [None]
  - Coagulopathy [None]
  - Oral herpes [None]
  - Haemorrhage [None]
  - Eczema herpeticum [None]
  - Drug interaction [None]
  - Pruritus [None]

NARRATIVE: CASE EVENT DATE: 20180311
